FAERS Safety Report 8115771-0 (Version None)
Quarter: 2012Q1

REPORT INFORMATION
  Report Type: 
  Country: None (occurrence: None)
  Receive Date: 20120201
  Receipt Date: 20120118
  Transmission Date: 20120608
  Serious: Yes (Hospitalization)
  Sender: FDA-Public Use
  Company Number: 1000027494

PATIENT
  Age: 27 Year
  Sex: Female

DRUGS (3)
  1. RISPERDAL [Suspect]
     Dosage: 1 MG (1 MG, 1 IN 1 D), ORAL
     Route: 048
     Dates: start: 20110914, end: 20110914
  2. ZYPREXA [Concomitant]
  3. ESCITALOPRAM OXALATE [Suspect]
     Dosage: 10 MG (10 MG, 1 IN 1 D), ORAL
     Route: 048
     Dates: start: 20110810

REACTIONS (2)
  - GALACTORRHOEA [None]
  - BLOOD PROLACTIN INCREASED [None]
